FAERS Safety Report 9842988 (Version 2)
Quarter: 2014Q1

REPORT INFORMATION
  Report Type: Report from Study
  Country: JP (occurrence: JP)
  Receive Date: 20140124
  Receipt Date: 20140124
  Transmission Date: 20141002
  Serious: Yes (Death, Life-Threatening, Hospitalization)
  Sender: FDA-Public Use
  Company Number: JP-SA-THYM-1004091

PATIENT
  Age: 35 Year
  Sex: Male
  Weight: 72 kg

DRUGS (7)
  1. THYMOGLOBULINE [Suspect]
     Indication: APLASTIC ANAEMIA
     Dosage: 250 MG, QD
     Route: 065
     Dates: start: 20120723, end: 20120727
  2. CICLOSPORIN [Concomitant]
     Indication: APLASTIC ANAEMIA
     Dosage: UNK
     Dates: end: 20120730
  3. DEFERASIROX [Concomitant]
     Indication: HAEMOCHROMATOSIS
     Dosage: UNK
     Dates: end: 20120730
  4. FAMOTIDINE [Concomitant]
     Indication: PROPHYLAXIS
     Dosage: UNK
     Dates: start: 20120723, end: 20120730
  5. METHYLPREDNISOLONE SODIUM SUCCINATE [Concomitant]
     Indication: PROPHYLAXIS
     Dosage: UNK
     Dates: start: 20120723, end: 20120727
  6. LENOGRASTIM [Concomitant]
     Indication: INFECTION PROPHYLAXIS
     Dosage: UNK
     Dates: start: 20120723, end: 20121005
  7. STRONG NEO-MINOPHAGEN C [Concomitant]
     Indication: LIVER DISORDER
     Dosage: UNK
     Dates: start: 20120723, end: 20120727

REACTIONS (8)
  - Septic shock [Not Recovered/Not Resolved]
  - Pseudomonal sepsis [Fatal]
  - Meningitis bacterial [Not Recovered/Not Resolved]
  - Herpes simplex meningoencephalitis [Not Recovered/Not Resolved]
  - Neutropenia [Not Recovered/Not Resolved]
  - Hydrocephalus [Not Recovered/Not Resolved]
  - Hypoalbuminaemia [Unknown]
  - Oropharyngeal candidiasis [Not Recovered/Not Resolved]
